FAERS Safety Report 7372821-7 (Version None)
Quarter: 2011Q1

REPORT INFORMATION
  Report Type: 
  Country: None (occurrence: None)
  Receive Date: 20110316
  Receipt Date: 20110308
  Transmission Date: 20110831
  Serious: Yes (Hospitalization, Other)
  Sender: FDA-Public Use
  Company Number: TAJPN-10-0770

PATIENT
  Age: 53 Year
  Sex: Female
  Weight: 55 kg

DRUGS (5)
  1. EMEND [Concomitant]
  2. ALOXI [Concomitant]
  3. DECADRON [Concomitant]
  4. ABRAXANE [Suspect]
     Indication: BREAST CANCER METASTATIC
     Dosage: 380 MG
     Dates: start: 20101202, end: 20110106
  5. DEXART (DEXAMETHANSONE SODIUM PHOSPHATE) [Concomitant]

REACTIONS (4)
  - WHITE BLOOD CELL COUNT DECREASED [None]
  - HAEMOGLOBIN DECREASED [None]
  - DECREASED APPETITE [None]
  - NEUTROPHIL COUNT DECREASED [None]
